FAERS Safety Report 20784295 (Version 1)
Quarter: 2022Q2

REPORT INFORMATION
  Report Type: Spontaneous
  Country: US (occurrence: US)
  Receive Date: 20220504
  Receipt Date: 20220504
  Transmission Date: 20220721
  Serious: Yes (Hospitalization, Other)
  Sender: FDA-Public Use
  Company Number: US-BRISTOL-MYERS SQUIBB COMPANY-2022-026955

PATIENT
  Age: 68 Year
  Sex: Female
  Weight: 60.78 kg

DRUGS (2)
  1. REVLIMID [Suspect]
     Active Substance: LENALIDOMIDE
     Indication: Diffuse large B-cell lymphoma
     Dosage: DOSE : 20MG|15MG;     FREQ : DAILY DAYS 1-21 THEN 7 DAYS OFF
     Route: 048
     Dates: start: 202201
  2. REVLIMID [Suspect]
     Active Substance: LENALIDOMIDE
     Dosage: FREQUENCY : ONE DAILY DAYS 1-21 THEN 7 DAYS OFF
     Route: 048

REACTIONS (4)
  - Neutropenia [Unknown]
  - Pyrexia [Unknown]
  - Infection [Unknown]
  - Intentional product use issue [Unknown]
